FAERS Safety Report 24803239 (Version 1)
Quarter: 2025Q1

REPORT INFORMATION
  Report Type: Spontaneous
  Country: US (occurrence: US)
  Receive Date: 20250103
  Receipt Date: 20250103
  Transmission Date: 20250409
  Serious: Yes (Hospitalization, Other)
  Sender: BRISTOL-MYERS SQUIBB COMPANY
  Company Number: US-BRISTOL-MYERS SQUIBB COMPANY-2025-000715

PATIENT
  Age: 79 Year
  Sex: Male
  Weight: 64.41 kg

DRUGS (1)
  1. REVLIMID [Suspect]
     Active Substance: LENALIDOMIDE
     Indication: Plasma cell myeloma
     Dosage: 2WKS ON/1WK OFF
     Route: 048
     Dates: start: 20230601

REACTIONS (2)
  - Fall [Recovering/Resolving]
  - Cerebral haemorrhage [Recovering/Resolving]
